FAERS Safety Report 6612165-1 (Version None)
Quarter: 2010Q1

REPORT INFORMATION
  Report Type: 
  Country: None (occurrence: None)
  Receive Date: 20100302
  Receipt Date: 20100302
  Transmission Date: 20100710
  Serious: Yes (Other)
  Sender: FDA-Public Use
  Company Number: None

PATIENT
  Age: 54 Year
  Sex: Male
  Weight: 96.1626 kg

DRUGS (1)
  1. MILAN GENERIC FOR OMEPRAZOLE 20 MG MILAN / CVS CAREMARK [Suspect]
     Indication: GASTROOESOPHAGEAL REFLUX DISEASE
     Dosage: 1 X 20MG CAPSULE DAILY PO
     Route: 048
     Dates: start: 20100205, end: 20100228

REACTIONS (2)
  - DRUG EFFECT DECREASED [None]
  - GASTROOESOPHAGEAL REFLUX DISEASE [None]
